FAERS Safety Report 21191970 (Version 3)
Quarter: 2022Q4

REPORT INFORMATION
  Report Type: Report from Study
  Country: US (occurrence: US)
  Receive Date: 20220809
  Receipt Date: 20221013
  Transmission Date: 20230112
  Serious: Yes (Death, Hospitalization, Other)
  Sender: FDA-Public Use
  Company Number: US-BIOGEN-2022BI01146084

PATIENT
  Age: 23 Year
  Sex: Male
  Weight: 104 kg

DRUGS (2)
  1. TYSABRI [Suspect]
     Active Substance: NATALIZUMAB
     Indication: Disease risk factor
     Dosage: TWICE
     Route: 050
     Dates: start: 20180123, end: 20180206
  2. METHYLPREDNISOLONE [Suspect]
     Active Substance: METHYLPREDNISOLONE
     Indication: Graft versus host disease
     Dosage: DAILY
     Route: 050
     Dates: start: 20180123, end: 20180129

REACTIONS (4)
  - Graft versus host disease [Fatal]
  - Bronchopulmonary aspergillosis [Fatal]
  - Pharyngeal haemorrhage [Unknown]
  - Respiratory failure [Unknown]

NARRATIVE: CASE EVENT DATE: 20180401
